FAERS Safety Report 13590186 (Version 2)
Quarter: 2017Q3

REPORT INFORMATION
  Report Type: Spontaneous
  Country: US (occurrence: US)
  Receive Date: 20170530
  Receipt Date: 20170821
  Transmission Date: 20171127
  Serious: No
  Sender: FDA-Public Use
  Company Number: US-STRONGBRIDGE BIOPHARMA-SR-KEV-2017-011

PATIENT
  Age: 35 Year
  Sex: Male

DRUGS (4)
  1. FLAXSEED [Concomitant]
     Active Substance: FLAX SEED
     Indication: PRODUCT USED FOR UNKNOWN INDICATION
  2. MULTIVITAMIN [Concomitant]
     Active Substance: VITAMINS
     Indication: PRODUCT USED FOR UNKNOWN INDICATION
  3. KEVEYIS [Suspect]
     Active Substance: DICHLORPHENAMIDE
     Indication: FAMILIAL PERIODIC PARALYSIS
     Route: 048
     Dates: start: 201511
  4. MAGNESIUM [Concomitant]
     Active Substance: MAGNESIUM
     Indication: PRODUCT USED FOR UNKNOWN INDICATION

REACTIONS (4)
  - Photophobia [Not Recovered/Not Resolved]
  - Visual impairment [Not Recovered/Not Resolved]
  - Eye pain [Not Recovered/Not Resolved]
  - Visual impairment [Recovered/Resolved]

NARRATIVE: CASE EVENT DATE: 201511
